FAERS Safety Report 24395588 (Version 1)
Quarter: 2024Q4

REPORT INFORMATION
  Report Type: Spontaneous
  Country: US (occurrence: US)
  Receive Date: 20241004
  Receipt Date: 20241004
  Transmission Date: 20250115
  Serious: Yes (Other)
  Sender: BOSTON SCIENTIFIC
  Company Number: US-BSC-2024000092

PATIENT

DRUGS (1)
  1. VARITHENA [Suspect]
     Active Substance: POLIDOCANOL
     Indication: Product used for unknown indication
     Dates: start: 2024

REACTIONS (1)
  - Amaurosis [Unknown]

NARRATIVE: CASE EVENT DATE: 20240101
